FAERS Safety Report 20605909 (Version 1)
Quarter: 2022Q1

REPORT INFORMATION
  Report Type: Spontaneous
  Country: DE (occurrence: DE)
  Receive Date: 20220317
  Receipt Date: 20220317
  Transmission Date: 20220423
  Serious: Yes (Other)
  Sender: FDA-Public Use
  Company Number: DE-PFIZER INC-202200320418

PATIENT
  Age: 18 Year
  Sex: Female

DRUGS (2)
  1. IBUPROFEN [Interacting]
     Active Substance: IBUPROFEN
     Indication: Product used for unknown indication
     Dosage: UNK, MONTHLY
     Route: 065
  2. COMIRNATY [Interacting]
     Active Substance: TOZINAMERAN
     Indication: COVID-19 immunisation
     Dosage: DOSE 2, SINGLE; IN TOTAL
     Route: 065
     Dates: start: 202109, end: 202109

REACTIONS (4)
  - Fatigue [Not Recovered/Not Resolved]
  - Listless [Not Recovered/Not Resolved]
  - Drug interaction [Unknown]
  - Anaemia [Not Recovered/Not Resolved]

NARRATIVE: CASE EVENT DATE: 20210101
